FAERS Safety Report 23513607 (Version 4)
Quarter: 2024Q2

REPORT INFORMATION
  Report Type: Spontaneous
  Country: US (occurrence: US)
  Receive Date: 20240212
  Receipt Date: 20240513
  Transmission Date: 20240716
  Serious: Yes (Other)
  Sender: FDA-Public Use
  Company Number: US-PFIZER INC-PV202400019420

PATIENT
  Age: 74 Year
  Sex: Female

DRUGS (1)
  1. CLINDAMYCIN PHOSPHATE [Suspect]
     Active Substance: CLINDAMYCIN PHOSPHATE
     Indication: Eye infection toxoplasmal
     Dosage: 1 MG (1.0 MG IN 0.1ML, INTRAVITRAL IN THE LEFT EYE)
     Route: 047

REACTIONS (4)
  - Retinopathy [Unknown]
  - Off label use [Unknown]
  - Drug effective for unapproved indication [Unknown]
  - Off label use [Unknown]
